FAERS Safety Report 22278963 (Version 1)
Quarter: 2023Q2

REPORT INFORMATION
  Report Type: Spontaneous
  Country: FR (occurrence: FR)
  Receive Date: 20230503
  Receipt Date: 20230503
  Transmission Date: 20230722
  Serious: No
  Sender: FDA-Public Use
  Company Number: FR-PFIZER INC-PV202300075997

PATIENT
  Age: 51 Year
  Sex: Male

DRUGS (1)
  1. PAXLOVID [Suspect]
     Active Substance: NIRMATRELVIR\RITONAVIR
     Indication: COVID-19 treatment
     Dosage: DOUBLE DOSE IN MORNING AND DOUBLE DOSE IN EVENING

REACTIONS (2)
  - Overdose [Unknown]
  - Gastrointestinal disorder [Unknown]
